FAERS Safety Report 5793285-0 (Version None)
Quarter: 2008Q2

REPORT INFORMATION
  Report Type: 
  Country: None (occurrence: None)
  Receive Date: 20080626
  Receipt Date: 20080626
  Transmission Date: 20081010
  Serious: No
  Sender: FDA-Public Use
  Company Number: None

PATIENT
  Age: 16 Year
  Sex: Male
  Weight: 84 kg

DRUGS (2)
  1. ACYCLOVIR [Suspect]
     Indication: SURGERY
     Dosage: 570 MG Q8HOURS IV
     Route: 042
     Dates: start: 20080405
  2. ZOFRAN [Suspect]
     Indication: PROPHYLAXIS
     Dosage: 2 MG Q8HOURS IVP
     Route: 042
     Dates: start: 20080405

REACTIONS (6)
  - CHILLS [None]
  - FLUSHING [None]
  - NAUSEA [None]
  - PYREXIA [None]
  - TREMOR [None]
  - VOMITING [None]
